FAERS Safety Report 9551258 (Version 1)
Quarter: 2013Q3

REPORT INFORMATION
  Report Type: Report from Study
  Country: MX (occurrence: MX)
  Receive Date: 20130925
  Receipt Date: 20130925
  Transmission Date: 20140515
  Serious: Yes (Other)
  Sender: FDA-Public Use
  Company Number: MX-ROCHE-1278357

PATIENT
  Age: 74 Year
  Sex: Male

DRUGS (2)
  1. LUCENTIS [Suspect]
     Indication: RETINAL DETACHMENT
     Route: 050
     Dates: start: 201212
  2. LUCENTIS [Suspect]
     Route: 050
     Dates: start: 201304

REACTIONS (2)
  - Diabetes mellitus [Not Recovered/Not Resolved]
  - Vision blurred [Not Recovered/Not Resolved]
